FAERS Safety Report 7111144-8 (Version None)
Quarter: 2010Q4

REPORT INFORMATION
  Report Type: 
  Country: None (occurrence: None)
  Receive Date: 20101118
  Receipt Date: 20091113
  Transmission Date: 20110411
  Serious: No
  Sender: FDA-Public Use
  Company Number: US-TEVA-215192USA

PATIENT
  Sex: Female
  Weight: 65.83 kg

DRUGS (1)
  1. ALBUTEROL SULFATE AUTOHALER [Suspect]
     Dosage: 2 PUFFS 2-3 TIMES DAILY
     Route: 055
     Dates: start: 20090913

REACTIONS (3)
  - COUGH [None]
  - GLOSSITIS [None]
  - THROAT IRRITATION [None]
